FAERS Safety Report 9920651 (Version 1)
Quarter: 2014Q1

REPORT INFORMATION
  Report Type: Report from Study
  Country: CN (occurrence: CN)
  Receive Date: 20140224
  Receipt Date: 20140224
  Transmission Date: 20141002
  Serious: Yes (Other)
  Sender: FDA-Public Use
  Company Number: CN-BAXTER-2014BAX009672

PATIENT
  Sex: Female

DRUGS (3)
  1. ENDOXAN [Suspect]
     Indication: BREAST CANCER STAGE I
     Route: 065
  2. METHOTREXATE [Suspect]
     Indication: BREAST CANCER STAGE I
     Route: 065
  3. 5-FLUOROURACIL [Suspect]
     Indication: BREAST CANCER STAGE I
     Route: 065

REACTIONS (1)
  - Musculoskeletal disorder [Unknown]
